FAERS Safety Report 9072849 (Version 1)
Quarter: 2013Q1

REPORT INFORMATION
  Report Type: Report from Study
  Country: US (occurrence: US)
  Receive Date: 20130129
  Receipt Date: 20130129
  Transmission Date: 20140127
  Serious: No
  Sender: FDA-Public Use
  Company Number: US-ABBOTT-12P-163-0927940-00

PATIENT
  Sex: Male
  Weight: 88.53 kg

DRUGS (6)
  1. HUMIRA 40 MG/ 0.8 ML PRE-FILLED SYRINGE [Suspect]
     Indication: PSORIASIS
     Dates: start: 201104, end: 201201
  2. LOTREL [Concomitant]
     Indication: HYPERTENSION
  3. ZETIA [Concomitant]
     Indication: HYPERLIPIDAEMIA
  4. LIVALO [Concomitant]
     Indication: BLOOD TRIGLYCERIDES INCREASED
  5. SERTRALINE [Concomitant]
     Indication: ANXIETY
  6. ASPIRIN [Concomitant]
     Indication: CARDIOVASCULAR EVENT PROPHYLAXIS

REACTIONS (3)
  - Drug ineffective [Not Recovered/Not Resolved]
  - Staphylococcal infection [Recovered/Resolved]
  - Psoriasis [Not Recovered/Not Resolved]
